FAERS Safety Report 5181053-2 (Version None)
Quarter: 2006Q4

REPORT INFORMATION
  Report Type: 
  Country: None (occurrence: None)
  Receive Date: 20061213
  Receipt Date: 20061213
  Transmission Date: 20070319
  Serious: Yes (Hospitalization)
  Sender: FDA-Public Use
  Company Number: None

PATIENT
  Sex: Male
  Weight: 87.9978 kg

DRUGS (12)
  1. AZITHROMYCIN [Suspect]
     Indication: BRONCHITIS ACUTE
     Dosage: 250 MG DAILY ORAL
     Route: 048
     Dates: start: 20061127
  2. WARFARIN SODIUM [Concomitant]
  3. INSULIN [Concomitant]
  4. COMBIVENT [Concomitant]
  5. LOPRESSOR [Concomitant]
  6. LIPITOR [Concomitant]
  7. SYNTHROID [Concomitant]
  8. ASPIRIN [Concomitant]
  9. DIOVAN [Concomitant]
  10. PRILOSEC [Concomitant]
  11. PRANDIN [Concomitant]
  12. AMBIEN [Concomitant]

REACTIONS (1)
  - CEREBROVASCULAR ACCIDENT [None]
